FAERS Safety Report 7832519-5 (Version None)
Quarter: 2011Q4

REPORT INFORMATION
  Report Type: 
  Country: None (occurrence: None)
  Receive Date: 20111024
  Receipt Date: 20111014
  Transmission Date: 20120403
  Serious: Yes (Hospitalization)
  Sender: FDA-Public Use
  Company Number: US-BIOGENIDEC-2011BI021481

PATIENT
  Age: 65 Year
  Sex: Female

DRUGS (1)
  1. TYSABRI [Suspect]
     Indication: MULTIPLE SCLEROSIS
     Route: 042
     Dates: start: 20110425

REACTIONS (10)
  - TRIGEMINAL NEURALGIA [None]
  - WEIGHT DECREASED [None]
  - VOMITING [None]
  - URINARY TRACT INFECTION [None]
  - APHAGIA [None]
  - DIZZINESS [None]
  - MALAISE [None]
  - ASTHENIA [None]
  - FALL [None]
  - SYNCOPE [None]
